FAERS Safety Report 7339994-3 (Version None)
Quarter: 2011Q1

REPORT INFORMATION
  Report Type: 
  Country: None (occurrence: None)
  Receive Date: 20110309
  Receipt Date: 20110304
  Transmission Date: 20110831
  Serious: No
  Sender: FDA-Public Use
  Company Number: US-PFIZER INC-2011048345

PATIENT
  Sex: Male
  Weight: 72.562 kg

DRUGS (2)
  1. METHADONE [Concomitant]
     Indication: INCONTINENCE
     Dosage: UNK
  2. TOVIAZ [Suspect]
     Indication: HYPERTONIC BLADDER
     Dosage: 8 MG, 1X/DAY
     Route: 048
     Dates: start: 20110224

REACTIONS (1)
  - CONSTIPATION [None]
